FAERS Safety Report 13233730 (Version 2)
Quarter: 2017Q1

REPORT INFORMATION
  Report Type: Spontaneous
  Country: UA (occurrence: UA)
  Receive Date: 20170215
  Receipt Date: 20170221
  Transmission Date: 20170428
  Serious: Yes (Other)
  Sender: FDA-Public Use
  Company Number: UA-SUN PHARMACEUTICAL INDUSTRIES LTD-2017R1-133517

PATIENT
  Age: 29 Year
  Sex: Female

DRUGS (2)
  1. TRIFLUOPERAZINE [Suspect]
     Active Substance: TRIFLUOPERAZINE\TRIFLUOPERAZINE HYDROCHLORIDE
     Indication: ACUTE PSYCHOSIS
     Dosage: 10 MG, DAILY
     Route: 030
  2. HALOPERIDOL. [Suspect]
     Active Substance: HALOPERIDOL
     Indication: ACUTE PSYCHOSIS
     Dosage: 10 MG, DAILY
     Route: 065

REACTIONS (1)
  - Condition aggravated [Unknown]
